FAERS Safety Report 23249280 (Version 1)
Quarter: 2023Q4

REPORT INFORMATION
  Report Type: Other
  Country: JP (occurrence: JP)
  Receive Date: 20231201
  Receipt Date: 20231201
  Transmission Date: 20240110
  Serious: Yes (Other)
  Sender: FDA-Public Use
  Company Number: JP-ORPHANEU-2023008306

PATIENT

DRUGS (6)
  1. DACTINOMYCIN [Suspect]
     Active Substance: DACTINOMYCIN
     Indication: Rhabdomyosarcoma
     Dosage: 0.045  MG/KG ON DAY 1
  2. DACTINOMYCIN [Suspect]
     Active Substance: DACTINOMYCIN
     Dosage: AS A PART OF SALVAGE THERAPY
  3. VINCRISTINE [Suspect]
     Active Substance: VINCRISTINE
     Indication: Rhabdomyosarcoma
     Dosage: 1.5  MG/M2 ON DAYS 1, 8 AND 15
  4. VINCRISTINE [Suspect]
     Active Substance: VINCRISTINE
     Dosage: AS A PART OF SALVAGE THERAPY
  5. CYCLOPHOSPHAMIDE [Suspect]
     Active Substance: CYCLOPHOSPHAMIDE
     Indication: Rhabdomyosarcoma
     Dosage: 1,500  MG/M2 - 2,200  MG/M2 ON DAY 1, WITH THE CYCLE REPEATED EVERY 3 WEEKS FOR A TOTAL OF 14 CYCLES
  6. CYCLOPHOSPHAMIDE [Suspect]
     Active Substance: CYCLOPHOSPHAMIDE
     Dosage: AS A SALVAGE THERAPY

REACTIONS (2)
  - Disease progression [Unknown]
  - Product use issue [Recovered/Resolved]
